FAERS Safety Report 7125137-8 (Version None)
Quarter: 2010Q4

REPORT INFORMATION
  Report Type: 
  Country: None (occurrence: None)
  Receive Date: 20101129
  Receipt Date: 20101027
  Transmission Date: 20110411
  Serious: Yes (Hospitalization, Other)
  Sender: FDA-Public Use
  Company Number: US-AMGEN-USASP2010002069

PATIENT

DRUGS (1)
  1. SENSIPAR [Suspect]
     Indication: HYPERPARATHYROIDISM SECONDARY
     Dosage: 30 MG, QD
     Dates: start: 20100401

REACTIONS (5)
  - AFFECTIVE DISORDER [None]
  - ENTERAL NUTRITION [None]
  - FALL [None]
  - PERSONALITY CHANGE [None]
  - SUBDURAL HAEMATOMA [None]
